FAERS Safety Report 26102302 (Version 3)
Quarter: 2025Q4

REPORT INFORMATION
  Report Type: Report from Study
  Country: EU (occurrence: EU)
  Receive Date: 20251128
  Receipt Date: 20251211
  Transmission Date: 20260117
  Serious: Yes (Hospitalization)
  Sender: PFIZER
  Company Number: EU-AstrazenecaRSG-7002-D926QC00001(Prod)000011

PATIENT
  Age: 42 Year
  Sex: Female
  Weight: 59 kg

DRUGS (59)
  1. DOXORUBICIN HYDROCHLORIDE [Suspect]
     Active Substance: DOXORUBICIN HYDROCHLORIDE
     Indication: Triple negative breast cancer
     Dosage: 60 MG/M2, ONCE EVERY 3 WK
     Route: 042
     Dates: start: 20250602, end: 20250602
  2. DOXORUBICIN HYDROCHLORIDE [Suspect]
     Active Substance: DOXORUBICIN HYDROCHLORIDE
     Dosage: 60 MG/M2, ONCE EVERY 3 WK
     Route: 042
     Dates: start: 20250623, end: 20250623
  3. DOXORUBICIN HYDROCHLORIDE [Suspect]
     Active Substance: DOXORUBICIN HYDROCHLORIDE
     Dosage: 60 MG/M2, ONCE EVERY 3 WK
     Route: 042
     Dates: start: 20250714, end: 20250714
  4. DOXORUBICIN HYDROCHLORIDE [Suspect]
     Active Substance: DOXORUBICIN HYDROCHLORIDE
     Dosage: 60 MG/M2, ONCE EVERY 3 WK
     Route: 042
     Dates: start: 20250804, end: 20250804
  5. PACLITAXEL [Suspect]
     Active Substance: PACLITAXEL
     Indication: Triple negative breast cancer
     Dosage: 80 MG/M2, ONCE EVERY 1 WK
     Route: 042
     Dates: start: 20250519, end: 20250519
  6. PACLITAXEL [Suspect]
     Active Substance: PACLITAXEL
     Dosage: 80 MG/M2, ONCE EVERY 1 WK
     Route: 042
     Dates: start: 20250512, end: 20250512
  7. PACLITAXEL [Suspect]
     Active Substance: PACLITAXEL
     Dosage: 80 MG/M2, ONCE EVERY 1 WK
     Route: 042
     Dates: start: 20250217, end: 20250217
  8. PACLITAXEL [Suspect]
     Active Substance: PACLITAXEL
     Dosage: 80 MG/M2, ONCE EVERY 1 WK
     Route: 042
     Dates: start: 20250303, end: 20250303
  9. PACLITAXEL [Suspect]
     Active Substance: PACLITAXEL
     Dosage: 80 MG/M2, ONCE EVERY 1 WK
     Route: 042
     Dates: start: 20250421, end: 20250421
  10. PACLITAXEL [Suspect]
     Active Substance: PACLITAXEL
     Dosage: 80 MG/M2, ONCE EVERY 1 WK
     Route: 042
     Dates: start: 20250324, end: 20250324
  11. PACLITAXEL [Suspect]
     Active Substance: PACLITAXEL
     Dosage: 80 MG/M2, ONCE EVERY 1 WK
     Route: 042
     Dates: start: 20250310, end: 20250324
  12. PACLITAXEL [Suspect]
     Active Substance: PACLITAXEL
     Dosage: 80 MG/M2, ONCE EVERY 1 WK
     Route: 042
     Dates: start: 20250317, end: 20250317
  13. PACLITAXEL [Suspect]
     Active Substance: PACLITAXEL
     Dosage: 80 MG/M2, ONCE EVERY 1 WK
     Route: 042
     Dates: start: 20250526, end: 20250526
  14. PACLITAXEL [Suspect]
     Active Substance: PACLITAXEL
     Dosage: 80 MG/M2, ONCE EVERY 1 WK
     Route: 042
     Dates: start: 20250224, end: 20250224
  15. PACLITAXEL [Suspect]
     Active Substance: PACLITAXEL
     Dosage: 80 MG/M2, ONCE EVERY 1 WK
     Route: 042
     Dates: start: 20250428, end: 20250428
  16. PACLITAXEL [Suspect]
     Active Substance: PACLITAXEL
     Dosage: 80 MG/M2, ONCE EVERY 1 WK
     Route: 042
     Dates: start: 20250331, end: 20250331
  17. CARBOPLATIN [Suspect]
     Active Substance: CARBOPLATIN
     Indication: Triple negative breast cancer
     Dosage: 1.5 AUC, ONCE EVERY 1 WK
     Route: 042
     Dates: start: 20250217, end: 20250217
  18. CARBOPLATIN [Suspect]
     Active Substance: CARBOPLATIN
     Dosage: 1.5 AUC, ONCE EVERY 1 WK
     Route: 042
     Dates: start: 20250224, end: 20250224
  19. CARBOPLATIN [Suspect]
     Active Substance: CARBOPLATIN
     Dosage: 1.5 AUC, ONCE EVERY 1 WK
     Route: 042
     Dates: start: 20250303, end: 20250303
  20. CARBOPLATIN [Suspect]
     Active Substance: CARBOPLATIN
     Dosage: 1.5 AUC, ONCE EVERY 1 WK
     Route: 042
     Dates: start: 20250310, end: 20250310
  21. CARBOPLATIN [Suspect]
     Active Substance: CARBOPLATIN
     Dosage: 1.5 AUC, ONCE EVERY 1 WK
     Route: 042
     Dates: start: 20250310, end: 20250310
  22. CARBOPLATIN [Suspect]
     Active Substance: CARBOPLATIN
     Dosage: 1.5 AUC, ONCE EVERY 1 WK
     Route: 042
     Dates: start: 20250317, end: 20250317
  23. CARBOPLATIN [Suspect]
     Active Substance: CARBOPLATIN
     Dosage: 1.5 AUC, ONCE EVERY 1 WK
     Route: 042
     Dates: start: 20250324, end: 20250324
  24. CARBOPLATIN [Suspect]
     Active Substance: CARBOPLATIN
     Dosage: 1.5 AUC, ONCE EVERY 1 WK
     Route: 042
     Dates: start: 20250324, end: 20250324
  25. CARBOPLATIN [Suspect]
     Active Substance: CARBOPLATIN
     Dosage: 1.5 AUC, ONCE EVERY 1 WK
     Route: 042
     Dates: start: 20250331, end: 20250331
  26. CARBOPLATIN [Suspect]
     Active Substance: CARBOPLATIN
     Dosage: 1.5 AUC, ONCE EVERY 1 WK
     Route: 042
     Dates: start: 20250428, end: 20250428
  27. CARBOPLATIN [Suspect]
     Active Substance: CARBOPLATIN
     Dosage: 1.5 AUC, ONCE EVERY 1 WK
     Route: 042
     Dates: start: 20250421, end: 20250421
  28. CARBOPLATIN [Suspect]
     Active Substance: CARBOPLATIN
     Dosage: 1.5 AUC, ONCE EVERY 1 WK
     Route: 042
     Dates: start: 20250512, end: 20250512
  29. CARBOPLATIN [Suspect]
     Active Substance: CARBOPLATIN
     Dosage: 1.5 AUC, ONCE EVERY 1 WK
     Route: 042
     Dates: start: 20250519, end: 20250519
  30. CARBOPLATIN [Suspect]
     Active Substance: CARBOPLATIN
     Dosage: 1.5 AUC, ONCE EVERY 1 WK
     Route: 042
     Dates: start: 20250526, end: 20250526
  31. PEMBROLIZUMAB [Suspect]
     Active Substance: PEMBROLIZUMAB
     Indication: Triple negative breast cancer
     Dosage: 200 MG, ONCE EVERY 3 WK
     Route: 042
     Dates: start: 20250217, end: 20250217
  32. PEMBROLIZUMAB [Suspect]
     Active Substance: PEMBROLIZUMAB
     Dosage: 200 MG, ONCE EVERY 3 WK
     Route: 042
     Dates: start: 20250331, end: 20250331
  33. PEMBROLIZUMAB [Suspect]
     Active Substance: PEMBROLIZUMAB
     Dosage: 200 MG, ONCE EVERY 3 WK
     Route: 042
     Dates: start: 20250804, end: 20250804
  34. PEMBROLIZUMAB [Suspect]
     Active Substance: PEMBROLIZUMAB
     Dosage: 200 MG, ONCE EVERY 3 WK
     Route: 042
     Dates: start: 20250602, end: 20250602
  35. PEMBROLIZUMAB [Suspect]
     Active Substance: PEMBROLIZUMAB
     Dosage: 200 MG, ONCE EVERY 3 WK
     Route: 042
     Dates: start: 20250512, end: 20250512
  36. PEMBROLIZUMAB [Suspect]
     Active Substance: PEMBROLIZUMAB
     Dosage: 200 MG, ONCE EVERY 3 WK
     Route: 042
     Dates: start: 20250623, end: 20250623
  37. PEMBROLIZUMAB [Suspect]
     Active Substance: PEMBROLIZUMAB
     Dosage: 200 MG, ONCE EVERY 3 WK
     Route: 042
     Dates: start: 20250714, end: 20250714
  38. PEMBROLIZUMAB [Suspect]
     Active Substance: PEMBROLIZUMAB
     Dosage: 200 MG, ONCE EVERY 3 WK
     Route: 042
     Dates: start: 20250310, end: 20250310
  39. CYCLOPHOSPHAMIDE [Suspect]
     Active Substance: CYCLOPHOSPHAMIDE
     Indication: Triple negative breast cancer
     Dosage: 600 MG/M2, ONCE EVERY 3 WK
     Route: 042
     Dates: start: 20250602, end: 20250602
  40. CYCLOPHOSPHAMIDE [Suspect]
     Active Substance: CYCLOPHOSPHAMIDE
     Dosage: 600 MG/M2, ONCE EVERY 3 WK
     Route: 042
     Dates: start: 20250623, end: 20250623
  41. CYCLOPHOSPHAMIDE [Suspect]
     Active Substance: CYCLOPHOSPHAMIDE
     Dosage: 600 MG/M2, ONCE EVERY 3 WK
     Route: 042
     Dates: start: 20250714, end: 20250714
  42. CYCLOPHOSPHAMIDE [Suspect]
     Active Substance: CYCLOPHOSPHAMIDE
     Dosage: 600 MG/M2, ONCE EVERY 3 WK
     Route: 042
     Dates: start: 20250804, end: 20250804
  43. DEXAMETHASONE [Concomitant]
     Active Substance: DEXAMETHASONE
     Indication: Prophylaxis
     Dosage: 12 MILLIGRAM, 30 MINUTES BEFORE EACH CYCLE
     Route: 042
     Dates: start: 20250602
  44. DEXAMETHASONE [Concomitant]
     Active Substance: DEXAMETHASONE
     Dosage: 8 MILLIGRAM, THE 2ND AND 3RD DAYS AFTER THE CYCLE
     Route: 048
     Dates: start: 20250602
  45. DEXAMETHASONE [Concomitant]
     Active Substance: DEXAMETHASONE
     Dosage: 10 MG, AS NEEDED
     Route: 042
     Dates: start: 20250303, end: 20250526
  46. DEXAMETHASONE [Concomitant]
     Active Substance: DEXAMETHASONE
     Dosage: 4 MILLIGRAM, THE FOURTH DAY OF THE CYCLE
     Route: 048
     Dates: start: 20250602
  47. APREPITANT [Concomitant]
     Active Substance: APREPITANT
     Indication: Prophylaxis
     Dosage: 125 MILLIGRAM, 1 HOUR BEFORE EACH CYCLE
     Route: 048
     Dates: start: 20250602
  48. APREPITANT [Concomitant]
     Active Substance: APREPITANT
     Dosage: 80 MILLIGRAM, THE 2ND AND 3RD DAYS AFTER THE CYCLE
     Route: 048
     Dates: start: 20250602
  49. DEXCHLORPHENIRAMINE [DEXCHLORPHENIRAMINE MALEATE] [Concomitant]
     Indication: Prophylaxis
     Dosage: 5 MG, AS NEEDED
     Dates: start: 20250217, end: 20250526
  50. AMOXICILLIN [Concomitant]
     Active Substance: AMOXICILLIN
     Indication: Pyrexia
     Dosage: 1500 MG, QD (500 MILLIGRAM, TID)
     Route: 048
     Dates: start: 20250909, end: 20251117
  51. AMOXICILLIN [Concomitant]
     Active Substance: AMOXICILLIN
     Indication: Prophylaxis
     Dosage: 1500 MG, QD (500 MILLIGRAM, TID)
     Route: 048
     Dates: start: 20250908, end: 20250908
  52. CLAVULANIC ACID [Concomitant]
     Active Substance: CLAVULANIC ACID
     Indication: Pyrexia
     Dosage: 375 MG, QD (125 MILLIGRAM, TID)
     Route: 048
     Dates: start: 20250909, end: 20250917
  53. CLAVULANIC ACID [Concomitant]
     Active Substance: CLAVULANIC ACID
     Indication: Prophylaxis
     Dosage: 375 MG, QD (125 MILLIGRAM, TID)
     Route: 048
     Dates: start: 20250908, end: 20250908
  54. ACETAMINOPHEN [Concomitant]
     Active Substance: ACETAMINOPHEN
     Indication: Pyrexia
     Dosage: 30 MG, QD (10 MILLIGRAM, TID)
     Route: 042
     Dates: start: 20250906, end: 20250908
  55. DEXKETOPROFEN [Concomitant]
     Active Substance: DEXKETOPROFEN
     Indication: Prophylaxis
     Dosage: 75 MG, QD (25 MILLIGRAM, TID)
     Route: 048
  56. GRANISETRON HYDROCHLORIDE [Concomitant]
     Active Substance: GRANISETRON HYDROCHLORIDE
     Indication: Prophylaxis
     Dosage: FREQ:{ASNECESSARY};3 MG, AS NEEDED
     Route: 042
     Dates: start: 20250217, end: 20250526
  57. FAMOTIDINE [Concomitant]
     Active Substance: FAMOTIDINE
     Indication: Prophylaxis
     Dosage: 20 MG, AS NEEDED
     Route: 042
     Dates: start: 20250217, end: 20250526
  58. ENOXAPARIN SODIUM [Concomitant]
     Active Substance: ENOXAPARIN SODIUM
     Indication: Anticoagulant therapy
     Dosage: 40 MG, QD
     Dates: start: 20250905, end: 20251005
  59. ONDANSETRON [Concomitant]
     Active Substance: ONDANSETRON
     Indication: Prophylaxis
     Dosage: 8 MILLIGRAM, 30 MINUTES BEFORE EACH CYCLE
     Route: 042
     Dates: start: 20250602

REACTIONS (1)
  - Post procedural fever [Recovered/Resolved]

NARRATIVE: CASE EVENT DATE: 20250906
